FAERS Safety Report 22276313 (Version 4)
Quarter: 2023Q2

REPORT INFORMATION
  Report Type: Report from Study
  Country: US (occurrence: US)
  Receive Date: 20230502
  Receipt Date: 20230628
  Transmission Date: 20230721
  Serious: Yes (Hospitalization)
  Sender: FDA-Public Use
  Company Number: US-REGENERON PHARMACEUTICALS, INC.-2023-053744

PATIENT
  Age: 72 Year
  Sex: Male

DRUGS (11)
  1. INVESTIGATIONAL PRODUCT [Suspect]
     Active Substance: INVESTIGATIONAL PRODUCT
     Indication: Adenocarcinoma
     Dosage: 100 MG, WEEKLY
     Route: 042
     Dates: start: 20230221, end: 20230405
  2. CEMIPLIMAB [Suspect]
     Active Substance: CEMIPLIMAB
     Indication: Adenocarcinoma
     Dosage: 350 MG, Q3W
     Route: 042
     Dates: start: 20230314, end: 20230405
  3. ZOFRAN [Concomitant]
     Active Substance: ONDANSETRON HYDROCHLORIDE
     Indication: Nausea
     Dosage: 8 MG, AS NECESSARY
     Route: 048
     Dates: start: 20230221
  4. TYLENOL [Concomitant]
     Active Substance: ACETAMINOPHEN
     Indication: Pyrexia
     Dosage: 500 MG, AS NECESSARY
     Route: 048
     Dates: start: 20230221
  5. MORPHINE [Concomitant]
     Active Substance: MORPHINE
     Indication: Back pain
     Dosage: 7.5 MG, Q4H
     Route: 048
     Dates: start: 20230131
  6. MEGACE [Concomitant]
     Active Substance: MEGESTROL ACETATE
     Indication: Decreased appetite
     Dosage: 400 MG, QD
     Route: 048
     Dates: start: 20230301
  7. GABAPENTIN [Concomitant]
     Active Substance: GABAPENTIN
     Indication: Pain in extremity
     Dosage: 300 MG, BID
     Route: 048
     Dates: start: 20230301
  8. METHYLPREDNISOLONE ACETATE [Concomitant]
     Active Substance: METHYLPREDNISOLONE ACETATE
     Indication: Autoimmune disorder
     Dosage: 32 MG, QD
     Route: 048
     Dates: start: 20230317, end: 20230322
  9. METHYLPREDNISOLONE ACETATE [Concomitant]
     Active Substance: METHYLPREDNISOLONE ACETATE
     Indication: Pain in extremity
     Dosage: 24 MG
     Route: 048
     Dates: start: 20230322
  10. METHYLPREDNISOLONE ACETATE [Concomitant]
     Active Substance: METHYLPREDNISOLONE ACETATE
     Dosage: 16 MG, QD
     Route: 048
     Dates: start: 20230328, end: 20230402
  11. METHYLPREDNISOLONE ACETATE [Concomitant]
     Active Substance: METHYLPREDNISOLONE ACETATE
     Dosage: 8 MG, QD
     Route: 048
     Dates: start: 20230402

REACTIONS (2)
  - Immune-mediated neurological disorder [Recovered/Resolved]
  - Cognitive disorder [Recovering/Resolving]

NARRATIVE: CASE EVENT DATE: 20230412
